FAERS Safety Report 4777817-7 (Version None)
Quarter: 2005Q3

REPORT INFORMATION
  Report Type: 
  Country: None (occurrence: None)
  Receive Date: 20050922
  Receipt Date: 20050909
  Transmission Date: 20060218
  Serious: Yes (Hospitalization)
  Sender: FDA-Public Use
  Company Number: 2005128922

PATIENT
  Sex: Female
  Weight: 83.9154 kg

DRUGS (3)
  1. BENADRYL [Suspect]
     Indication: PHARYNGEAL OEDEMA
  2. BENADRYL [Suspect]
     Indication: URTICARIA
  3. BENADRYL COLD/FLU (DIPHENHYDRAMINE, PARACETAMOL, PSEUDOEPHEDRINE) [Suspect]
     Indication: ILL-DEFINED DISORDER

REACTIONS (2)
  - PHARYNGEAL OEDEMA [None]
  - URTICARIA [None]
